FAERS Safety Report 10866275 (Version 1)
Quarter: 2015Q1

REPORT INFORMATION
  Report Type: Spontaneous
  Country: US (occurrence: None)
  Receive Date: 20150219
  Receipt Date: 20150219
  Transmission Date: 20150721
  Serious: No
  Sender: FDA-Public Use
  Company Number: None

PATIENT
  Age: 20 Year
  Sex: Female
  Weight: 99.79 kg

DRUGS (1)
  1. FEXOFENADINE HYDROCHLORIDE 60 MG, KROGER [Suspect]
     Active Substance: FEXOFENADINE HYDROCHLORIDE
     Indication: HOUSE DUST ALLERGY
     Dates: start: 20150213, end: 20150214

REACTIONS (1)
  - Vertigo [None]

NARRATIVE: CASE EVENT DATE: 20150214
